FAERS Safety Report 7522849-9 (Version None)
Quarter: 2011Q2

REPORT INFORMATION
  Report Type: 
  Country: None (occurrence: None)
  Receive Date: 20110603
  Receipt Date: 20110524
  Transmission Date: 20111010
  Serious: Yes (Other)
  Sender: FDA-Public Use
  Company Number: FR-SANOFI-AVENTIS-2011SA029179

PATIENT
  Age: 75 Year
  Sex: Female

DRUGS (6)
  1. PERINDOPRIL ERBUMINE [Suspect]
     Route: 048
  2. PROPRANOLOL [Concomitant]
     Indication: TREMOR
     Route: 048
     Dates: start: 20110101
  3. LASIX [Suspect]
     Route: 048
  4. MEDIATOR [Concomitant]
     Dates: start: 19960101, end: 20030101
  5. MODOPAR [Suspect]
     Indication: PARKINSON'S DISEASE
     Route: 048
  6. HUMALOG [Suspect]

REACTIONS (1)
  - INTERSTITIAL LUNG DISEASE [None]
